FAERS Safety Report 11131860 (Version 1)
Quarter: 2015Q2

REPORT INFORMATION
  Report Type: Spontaneous
  Country: JP (occurrence: JP)
  Receive Date: 20150522
  Receipt Date: 20150522
  Transmission Date: 20150821
  Serious: Yes (Death, Other)
  Sender: FDA-Public Use
  Company Number: JP-BAYER-2014-004921

PATIENT
  Age: 74 Year
  Sex: Male
  Weight: 58 kg

DRUGS (7)
  1. AMLODIN [Concomitant]
     Active Substance: AMLODIPINE BESYLATE
     Dosage: DAILY DOSE 5 MG
     Route: 048
     Dates: end: 20141001
  2. HIRUDOID [Concomitant]
     Active Substance: GLYCOSAMINOGLYCANS
     Indication: DRUG TOXICITY PROPHYLAXIS
     Dosage: UNK
     Route: 061
  3. KERATINAMIN [Concomitant]
     Active Substance: UREA
     Indication: DRUG TOXICITY PROPHYLAXIS
     Dosage: UNK
     Route: 061
  4. STIVARGA [Suspect]
     Active Substance: REGORAFENIB
     Indication: RECTAL CANCER
     Dosage: 160 MG, QD
     Route: 048
     Dates: start: 20130920, end: 20131128
  5. STIVARGA [Suspect]
     Active Substance: REGORAFENIB
     Indication: RECTAL CANCER
     Dosage: 120 MG, QD
     Route: 048
     Dates: start: 20131212, end: 20140710
  6. STIVARGA [Suspect]
     Active Substance: REGORAFENIB
     Indication: RECTAL CANCER
     Dosage: 80 MG, QD
     Route: 048
     Dates: start: 20140718, end: 20140917
  7. DERMOVATE [Concomitant]
     Active Substance: CLOBETASOL
     Indication: DRUG TOXICITY PROPHYLAXIS
     Dosage: UNK
     Route: 061

REACTIONS (7)
  - Rectal cancer metastatic [Fatal]
  - Dysgeusia [Not Recovered/Not Resolved]
  - Palmar-plantar erythrodysaesthesia syndrome [Recovered/Resolved]
  - Decreased appetite [Recovered/Resolved]
  - White blood cell count decreased [Recovered/Resolved]
  - Stomatitis [Recovering/Resolving]
  - Malaise [Recovered/Resolved]

NARRATIVE: CASE EVENT DATE: 20131007
